FAERS Safety Report 6232787-X (Version None)
Quarter: 2009Q2

REPORT INFORMATION
  Report Type: 
  Country: None (occurrence: None)
  Receive Date: 20090612
  Receipt Date: 20090612
  Transmission Date: 20091009
  Serious: Yes (Other)
  Sender: FDA-Public Use
  Company Number: None

PATIENT
  Age: 58 Year
  Sex: Male
  Weight: 215 kg

DRUGS (11)
  1. CETIRIZINE HCL [Suspect]
     Indication: MULTIPLE ALLERGIES
     Dosage: 10 MG QD
     Dates: start: 20090526, end: 20090531
  2. ASTELIN [Concomitant]
  3. SYMBICORT [Concomitant]
  4. FLONASE [Concomitant]
  5. DIOVAN HCT [Concomitant]
  6. PLAVIX [Concomitant]
  7. SINGULAIR [Concomitant]
  8. CADUET [Concomitant]
  9. NAISPAN [Concomitant]
  10. ASPIRIN [Concomitant]
  11. ANDROGEL [Concomitant]

REACTIONS (3)
  - COUGH [None]
  - DYSPNOEA [None]
  - FEELING ABNORMAL [None]
